FAERS Safety Report 5491267-X (Version None)
Quarter: 2007Q4

REPORT INFORMATION
  Report Type: 
  Country: None (occurrence: None)
  Receive Date: 20071017
  Receipt Date: 20071002
  Transmission Date: 20080405
  Serious: Yes (Life-Threatening)
  Sender: FDA-Public Use
  Company Number: S07-FRA-05460-01

PATIENT
  Age: 52 Year
  Sex: Male

DRUGS (4)
  1. SEROPLEX                                          (ESCITALOPRAM) [Suspect]
     Indication: DEPRESSION
     Dosage: 20 MG QD PO
     Route: 048
     Dates: start: 20070101, end: 20070601
  2. URBANYL            (CLOBAZAM) [Concomitant]
  3. THERALENE             (ALIMEMAZINE TARTRATE) [Concomitant]
  4. PRAZEPAM [Concomitant]

REACTIONS (3)
  - GASTROINTESTINAL EROSION [None]
  - PHLEBITIS [None]
  - PULMONARY EMBOLISM [None]
